FAERS Safety Report 7630521-X (Version None)
Quarter: 2011Q3

REPORT INFORMATION
  Report Type: 
  Country: None (occurrence: None)
  Receive Date: 20110722
  Receipt Date: 20110718
  Transmission Date: 20111222
  Serious: Yes (Other)
  Sender: FDA-Public Use
  Company Number: CA-PFIZER INC-2011126382

PATIENT
  Age: 74 Year
  Sex: Female

DRUGS (2)
  1. SYNTHROID [Concomitant]
     Indication: THYROID DISORDER
     Dosage: UNK
  2. XALATAN [Suspect]
     Indication: GLAUCOMA
     Dosage: 1 GTT IN BOTH EYES, 1X/DAY AT BEDTIME
     Route: 047

REACTIONS (1)
  - INTRAOCULAR PRESSURE INCREASED [None]
